FAERS Safety Report 8154165 (Version 4)
Quarter: 2014Q2

REPORT INFORMATION
  Report Type: Report from Study
  Country: DE (occurrence: DE)
  Receive Date: 20110923
  Receipt Date: 20140630
  Transmission Date: 20141212
  Serious: Yes (Life-Threatening, Hospitalization, Other)
  Sender: FDA-Public Use
  Company Number: PHHO2011DE10960

PATIENT
  Sex: 0

DRUGS (13)
  1. CGP 57148B [Suspect]
     Indication: PULMONARY ARTERIAL HYPERTENSION
     Dosage: 400 MG, QD
     Route: 048
     Dates: start: 20110416, end: 20110626
  2. IBUPROFEN [Suspect]
     Indication: NECK PAIN
     Dosage: 600 MG, QD
  3. PHENPROCOUMON [Suspect]
     Indication: PULMONARY ARTERIAL HYPERTENSION
     Dosage: UNK
     Route: 048
     Dates: start: 20060101
  4. REVATIO [Concomitant]
     Indication: PULMONARY HYPERTENSION
     Dosage: 20 MG, TID
     Dates: start: 20061012, end: 20110626
  5. L-THYROXINE [Concomitant]
     Indication: THYROID DISORDER
     Dosage: 175 MG, QD
     Dates: start: 19950101, end: 20110626
  6. TORSEMIDE [Concomitant]
     Indication: RIGHT VENTRICULAR FAILURE
     Dosage: 10 MG, BID
     Dates: end: 20110626
  7. ALLOPURINOL [Concomitant]
     Indication: BLOOD URIC ACID INCREASED
     Dosage: 300 MG, QD
     Dates: end: 20110626
  8. LIVOCAB [Concomitant]
     Indication: NASAL CONGESTION
     Dosage: 0.5 %, BID
  9. BROMAZEPAM [Concomitant]
     Indication: SLEEP DISORDER
     Dosage: 0.15 MG, UNK
     Route: 048
  10. SPIRONOLACTONE [Concomitant]
     Indication: DIURETIC THERAPY
     Dosage: 50 MG, QD
  11. SYMBICORT [Concomitant]
     Indication: CHRONIC OBSTRUCTIVE PULMONARY DISEASE
     Dosage: UNK MG, BID
  12. OMEPRAZOLE [Concomitant]
     Indication: GASTRIC DISORDER
     Dosage: 40 MG, QD
  13. MARCUMAR [Concomitant]
     Indication: THROMBOSIS PROPHYLAXIS
     Dosage: UNK
     Dates: start: 20110627, end: 20110712

REACTIONS (2)
  - Concomitant disease progression [Recovered/Resolved with Sequelae]
  - Thrombosis [Recovered/Resolved]
